FAERS Safety Report 24767213 (Version 1)
Quarter: 2024Q4

REPORT INFORMATION
  Report Type: Spontaneous
  Country: CN (occurrence: CN)
  Receive Date: 20241223
  Receipt Date: 20241223
  Transmission Date: 20250115
  Serious: Yes (Other)
  Sender: FRESENIUS KABI
  Company Number: CN-FreseniusKabi-FK202419143

PATIENT
  Age: 26 Year
  Sex: Male
  Weight: 68 kg

DRUGS (5)
  1. PROPOFOL [Suspect]
     Active Substance: PROPOFOL
     Indication: Sedation
     Dosage: AT 15:40, FIRST DOSE OF 68MG (1MG/KG) , MAINTENANCE DOSE 40MGX4 TIMES ?DOSAGE FORM: INJECTION?ROA: I
     Dates: start: 20241213, end: 20241213
  2. SUFENTANIL CITRATE [Suspect]
     Active Substance: SUFENTANIL CITRATE
     Indication: Analgesic therapy
     Dosage: DOSAGE FORM: INJECTION?ROA: INTRAVENOUS
     Dates: start: 20241213, end: 20241213
  3. SUFENTANIL CITRATE [Suspect]
     Active Substance: SUFENTANIL CITRATE
     Indication: Sedation
  4. REMIMAZOLAM BESYLATE [Suspect]
     Active Substance: REMIMAZOLAM BESYLATE
     Indication: Sedation
     Dosage: DOSAGE FORM: POWDER FOR INJECTION?ROA: INTRAVENOUS
     Dates: start: 20241213, end: 20241213
  5. SODIUM CHLORIDE [Concomitant]
     Active Substance: SODIUM CHLORIDE
     Indication: Vehicle solution use
     Dosage: DOSAGE FORM: INJECTION?ROA: INTRAVENOUS
     Dates: start: 20241213, end: 20241213

REACTIONS (4)
  - Chills [Recovered/Resolved]
  - Restlessness [Recovered/Resolved]
  - Tachypnoea [Recovered/Resolved]
  - Pyrexia [Recovered/Resolved]

NARRATIVE: CASE EVENT DATE: 20241213
